FAERS Safety Report 7101793-5 (Version None)
Quarter: 2010Q4

REPORT INFORMATION
  Report Type: 
  Country: None (occurrence: None)
  Receive Date: 20101115
  Receipt Date: 20101111
  Transmission Date: 20110411
  Serious: Yes (Death)
  Sender: FDA-Public Use
  Company Number: GB-SANOFI-AVENTIS-2010SA068737

PATIENT
  Sex: Female

DRUGS (1)
  1. TAXOTERE [Suspect]

REACTIONS (1)
  - FEBRILE NEUTROPENIA [None]
